FAERS Safety Report 4481162-7 (Version None)
Quarter: 2004Q4

REPORT INFORMATION
  Report Type: 
  Country: None (occurrence: None)
  Receive Date: 20041021
  Receipt Date: 20041012
  Transmission Date: 20050328
  Serious: Yes (Hospitalization, Disabling)
  Sender: FDA-Public Use
  Company Number: US-MERCK-0410USA01788

PATIENT
  Age: 72 Year
  Sex: Female

DRUGS (3)
  1. VIOXX [Suspect]
     Indication: ARTHRITIS
     Route: 048
     Dates: start: 20020101
  2. FOSAMAX [Concomitant]
     Route: 048
  3. NITROGLYCERIN [Concomitant]
     Route: 065

REACTIONS (3)
  - CORONARY ARTERY DISEASE [None]
  - DYSPNOEA EXERTIONAL [None]
  - MOBILITY DECREASED [None]
